FAERS Safety Report 5177123-5 (Version None)
Quarter: 2006Q4

REPORT INFORMATION
  Report Type: 
  Country: None (occurrence: None)
  Receive Date: 20061207
  Receipt Date: 20061122
  Transmission Date: 20070319
  Serious: Yes (Other)
  Sender: FDA-Public Use
  Company Number: JPI-P-000143

PATIENT
  Age: 58 Year
  Sex: Male
  Weight: 77.1115 kg

DRUGS (4)
  1. XYREM [Suspect]
     Indication: CATAPLEXY
     Dosage: 9 GM (4.5 GM, 2 IN 1 D), ORAL
     Route: 048
     Dates: start: 20000101
  2. GLUCOSAMINE/CHONDROITIN (CHONDROITIN W/GLUCOSAMINE) [Concomitant]
  3. PROVIGIL [Concomitant]
  4. ASPIRIN [Concomitant]

REACTIONS (2)
  - ALLERGY TEST POSITIVE [None]
  - ANAPHYLACTIC REACTION [None]
